FAERS Safety Report 23250390 (Version 1)
Quarter: 2023Q4

REPORT INFORMATION
  Report Type: Spontaneous
  Country: GB (occurrence: GB)
  Receive Date: 20231201
  Receipt Date: 20231201
  Transmission Date: 20240109
  Serious: Yes (Other)
  Sender: FDA-Public Use
  Company Number: None

PATIENT
  Age: 53 Year
  Sex: Female
  Weight: 60 kg

DRUGS (6)
  1. MIRTAZAPINE [Suspect]
     Active Substance: MIRTAZAPINE
     Dosage: AT NIGHT
     Dates: start: 20231113
  2. CLARITHROMYCIN [Concomitant]
     Active Substance: CLARITHROMYCIN
     Indication: Cellulitis
     Dosage: 1 DOSAGE FORM, BID
     Dates: start: 20230824, end: 20230922
  3. DERMOL [BENZALKONIUM CHLORIDE;CHLORHEXIDINE HYDROCHLORIDE;ISOPROPYL MY [Concomitant]
     Indication: Cellulitis
     Dosage: APPLY TO SKIN OR USE AS A SOAP SUBSTITUTE AS HAS ANTIBACTERIAL PROPERTIES
     Route: 061
     Dates: start: 20230824
  4. FLUCONAZOLE [Concomitant]
     Active Substance: FLUCONAZOLE
     Dosage: TAKEN IMMEDIATELY
     Dates: start: 20230906, end: 20231005
  5. FUSIDIC ACID [Concomitant]
     Active Substance: FUSIDIC ACID
     Indication: Cellulitis
     Dosage: APPLY TO EARLY SKIN INFECTIONS
     Route: 061
     Dates: start: 20230824, end: 20231006
  6. TRIMETHOPRIM [Concomitant]
     Active Substance: TRIMETHOPRIM
     Dosage: 1 DOSAGE FORM, BID
     Dates: start: 20230906, end: 20231005

REACTIONS (2)
  - Suicidal ideation [Unknown]
  - Mental disorder [Unknown]
